FAERS Safety Report 8589705-9 (Version None)
Quarter: 2012Q3

REPORT INFORMATION
  Report Type: 
  Country: None (occurrence: None)
  Receive Date: 20120813
  Receipt Date: 20120808
  Transmission Date: 20120928
  Serious: No
  Sender: FDA-Public Use
  Company Number: US-PFIZER INC-2012194508

PATIENT
  Age: 50 Year
  Sex: Male

DRUGS (2)
  1. INLYTA [Suspect]
     Indication: RENAL CANCER
     Dosage: 7 MG, 2X/DAY
  2. INLYTA [Suspect]
     Dosage: 10 MG, 1X/DAY
     Dates: start: 20120501

REACTIONS (7)
  - INCREASED TENDENCY TO BRUISE [None]
  - FATIGUE [None]
  - DECREASED APPETITE [None]
  - THYROID FUNCTION TEST ABNORMAL [None]
  - DIARRHOEA [None]
  - WEIGHT INCREASED [None]
  - HYPERAESTHESIA [None]
